FAERS Safety Report 5663207-1 (Version None)
Quarter: 2008Q1

REPORT INFORMATION
  Report Type: 
  Country: None (occurrence: None)
  Receive Date: 20080313
  Receipt Date: 20080303
  Transmission Date: 20080703
  Serious: Yes (Hospitalization, Other)
  Sender: FDA-Public Use
  Company Number: US-PFIZER INC-2008020059

PATIENT
  Age: 30 Year
  Sex: Female
  Weight: 68 kg

DRUGS (3)
  1. GEODON [Suspect]
     Indication: SCHIZOPHRENIA
     Route: 048
  2. ZOLOFT [Suspect]
     Indication: DEPRESSION
     Dates: start: 20060101, end: 20061201
  3. ANALGESICS [Concomitant]

REACTIONS (7)
  - DEPRESSION [None]
  - FIBROMYALGIA [None]
  - LABORATORY TEST ABNORMAL [None]
  - MUSCLE TIGHTNESS [None]
  - PAIN IN EXTREMITY [None]
  - SCHIZOPHRENIA [None]
  - WEIGHT DECREASED [None]
